FAERS Safety Report 7853647-4 (Version None)
Quarter: 2011Q4

REPORT INFORMATION
  Report Type: 
  Country: None (occurrence: None)
  Receive Date: 20111026
  Receipt Date: 20111026
  Transmission Date: 20120403
  Serious: Yes (Hospitalization)
  Sender: FDA-Public Use
  Company Number: AU-PFIZER INC-2011254357

PATIENT
  Age: 78 Year
  Sex: Male

DRUGS (1)
  1. VARENICLINE TARTRATE [Suspect]
     Dosage: UNK
     Dates: start: 20110101, end: 20111001

REACTIONS (3)
  - DELUSIONAL PERCEPTION [None]
  - PSYCHOTIC DISORDER [None]
  - SELF-INJURIOUS IDEATION [None]
